FAERS Safety Report 4815517-5 (Version None)
Quarter: 2005Q4

REPORT INFORMATION
  Report Type: 
  Country: None (occurrence: None)
  Receive Date: 20051028
  Receipt Date: 20051028
  Transmission Date: 20060501
  Serious: Yes (Hospitalization)
  Sender: FDA-Public Use
  Company Number: None

PATIENT
  Age: 59 Year
  Sex: Male
  Weight: 75.2971 kg

DRUGS (6)
  1. RITUXAN [Suspect]
     Indication: NON-HODGKIN'S LYMPHOMA REFRACTORY
     Dosage: 750 MG IV Q21DA
     Route: 042
     Dates: start: 20050420
  2. GALLIUM NITRATE GENTA, INC} [Suspect]
     Indication: NON-HODGKIN'S LYMPHOMA REFRACTORY
     Dosage: IV X 7DA
     Dates: start: 20050420, end: 20050427
  3. COMPAZINE [Concomitant]
  4. DEXAMETHASONE [Concomitant]
  5. ATIVAN [Concomitant]
  6. AMBIEN [Concomitant]

REACTIONS (5)
  - DYSPNOEA [None]
  - DYSPNOEA EXERTIONAL [None]
  - PNEUMOCYSTIS JIROVECI PNEUMONIA [None]
  - PRODUCTIVE COUGH [None]
  - WEIGHT DECREASED [None]
